FAERS Safety Report 15530677 (Version 7)
Quarter: 2020Q4

REPORT INFORMATION
  Report Type: Report from Study
  Country: US (occurrence: US)
  Receive Date: 20181018
  Receipt Date: 20201112
  Transmission Date: 20210113
  Serious: Yes (Hospitalization, Other)
  Sender: FDA-Public Use
  Company Number: US-GILEAD-2018-0365762

PATIENT
  Age: 64 Year
  Sex: Male
  Weight: 82 kg

DRUGS (35)
  1. FLUDARABINE [Suspect]
     Active Substance: FLUDARABINE PHOSPHATE
     Dosage: 30
     Route: 042
     Dates: start: 20180906, end: 20180906
  2. MESNA. [Suspect]
     Active Substance: MESNA
     Dosage: 191 X2
     Route: 065
     Dates: start: 20180906, end: 20180906
  3. MESNA. [Suspect]
     Active Substance: MESNA
     Dosage: 191 X2
     Route: 065
     Dates: start: 20180907, end: 20180907
  4. SEROQUEL [Concomitant]
     Active Substance: QUETIAPINE FUMARATE
     Dosage: 25,MG,DAILY
     Route: 048
     Dates: start: 20181203
  5. CYCLOPHOSPHAMIDE. [Suspect]
     Active Substance: CYCLOPHOSPHAMIDE
     Dosage: 955 MG, QD
     Route: 042
     Dates: start: 20180905, end: 20180907
  6. FLUDARABINE [Suspect]
     Active Substance: FLUDARABINE PHOSPHATE
     Indication: BONE MARROW CONDITIONING REGIMEN
     Dosage: 30
     Route: 042
     Dates: start: 20180905, end: 20180905
  7. FAMOTIDINE. [Concomitant]
     Active Substance: FAMOTIDINE
     Dosage: 20 MG, QD
     Route: 048
     Dates: start: 20180910
  8. DOXYCYCLINE HYCLATE. [Concomitant]
     Active Substance: DOXYCYCLINE HYCLATE
  9. FLUDARABINE [Suspect]
     Active Substance: FLUDARABINE PHOSPHATE
     Dosage: 57.3 MG, QD
     Route: 042
     Dates: start: 20180905, end: 20180907
  10. MULTIVITAMINS [VITAMINS NOS] [Concomitant]
     Active Substance: VITAMINS
  11. NORTRIPTYLINE [Concomitant]
     Active Substance: NORTRIPTYLINE
  12. PEPCID [Concomitant]
     Active Substance: FAMOTIDINE
  13. TYLENOL [Concomitant]
     Active Substance: ACETAMINOPHEN
  14. MESNA. [Suspect]
     Active Substance: MESNA
     Dosage: 382
     Route: 048
     Dates: start: 20180906, end: 20180906
  15. KENALOG [Concomitant]
     Active Substance: TRIAMCINOLONE ACETONIDE
  16. ZYRTEC [Concomitant]
     Active Substance: CETIRIZINE HYDROCHLORIDE
  17. EMEND [Concomitant]
     Active Substance: APREPITANT
  18. MESNA. [Suspect]
     Active Substance: MESNA
     Dosage: 382
     Route: 048
     Dates: start: 20180905, end: 20180905
  19. MESNA. [Suspect]
     Active Substance: MESNA
     Dosage: 382
     Route: 048
     Dates: start: 20180907, end: 20180907
  20. ALLEGRA [Concomitant]
     Active Substance: FEXOFENADINE HYDROCHLORIDE
  21. OXYCODONE [Concomitant]
     Active Substance: OXYCODONE
  22. QUETIAPINE FUMARATE. [Concomitant]
     Active Substance: QUETIAPINE FUMARATE
  23. AXICABTAGENE CILOLEUCEL [Suspect]
     Active Substance: AXICABTAGENE CILOLEUCEL
     Indication: B-CELL LYMPHOMA
     Dosage: 68 ML, ONCE
     Route: 042
     Dates: start: 20180910, end: 20180910
  24. CYCLOPHOSPHAMIDE. [Suspect]
     Active Substance: CYCLOPHOSPHAMIDE
     Dosage: 500
     Route: 042
     Dates: start: 20180907, end: 20180907
  25. MESNA. [Suspect]
     Active Substance: MESNA
     Indication: PROPHYLAXIS
     Dosage: 191 X2
     Route: 065
     Dates: start: 20180905, end: 20180905
  26. APIXABAN [Concomitant]
     Active Substance: APIXABAN
     Indication: ATRIAL FLUTTER
     Dosage: 5 MG, QD
     Route: 048
     Dates: start: 20180910
  27. CYCLOPHOSPHAMIDE. [Suspect]
     Active Substance: CYCLOPHOSPHAMIDE
     Dosage: 500
     Route: 042
     Dates: start: 20180906, end: 20180906
  28. FLUDARABINE [Suspect]
     Active Substance: FLUDARABINE PHOSPHATE
     Dosage: 30
     Route: 042
     Dates: start: 20180907, end: 20180907
  29. OFLOXACIN. [Concomitant]
     Active Substance: OFLOXACIN
  30. DOXEPIN [Concomitant]
     Active Substance: DOXEPIN
  31. COMPAZINE [Concomitant]
     Active Substance: PROCHLORPERAZINE MALEATE
  32. FOLIC ACID. [Concomitant]
     Active Substance: FOLIC ACID
  33. CYCLOPHOSPHAMIDE. [Suspect]
     Active Substance: CYCLOPHOSPHAMIDE
     Indication: BONE MARROW CONDITIONING REGIMEN
     Dosage: 500
     Route: 042
     Dates: start: 20180905, end: 20180905
  34. ALLOPURINOL. [Concomitant]
     Active Substance: ALLOPURINOL
     Dosage: 300 MG, QD
     Route: 048
     Dates: start: 20180910
  35. BENADRYL ALLERGY [Concomitant]
     Active Substance: DIPHENHYDRAMINE HYDROCHLORIDE

REACTIONS (6)
  - Rash maculo-papular [Recovered/Resolved]
  - Neutropenia [Recovered/Resolved]
  - Pyrexia [Recovered/Resolved]
  - Prostate cancer [Recovered/Resolved]
  - Mucosal inflammation [Recovered/Resolved]
  - Cytokine release syndrome [Recovered/Resolved]

NARRATIVE: CASE EVENT DATE: 20180924
